FAERS Safety Report 12715212 (Version 2)
Quarter: 2016Q3

REPORT INFORMATION
  Report Type: Spontaneous
  Country: IT (occurrence: IT)
  Receive Date: 20160906
  Receipt Date: 20160918
  Transmission Date: 20161109
  Serious: Yes (Hospitalization)
  Sender: FDA-Public Use
  Company Number: IT-ROCHE-1825131

PATIENT
  Age: 77 Year
  Sex: Male
  Weight: 56 kg

DRUGS (2)
  1. AVASTIN [Suspect]
     Active Substance: BEVACIZUMAB
     Indication: INTESTINAL ADENOCARCINOMA
     Dosage: 1 X 100 MG VIAL
     Route: 041
     Dates: start: 20151008
  2. XELODA [Concomitant]
     Active Substance: CAPECITABINE
     Dosage: 500 MG 120 FILM-COATED TABLETS IN A BLISTER PACK
     Route: 065
     Dates: start: 20151008, end: 20160525

REACTIONS (5)
  - Mitral valve incompetence [Recovering/Resolving]
  - Retroperitoneal haematoma [Recovering/Resolving]
  - Myocardial infarction [Recovering/Resolving]
  - Femoral artery perforation [Recovering/Resolving]
  - Pericardial effusion [Recovering/Resolving]

NARRATIVE: CASE EVENT DATE: 20160530
